FAERS Safety Report 6792151-1 (Version None)
Quarter: 2010Q2

REPORT INFORMATION
  Report Type: 
  Country: None (occurrence: None)
  Receive Date: 20100624
  Receipt Date: 20090713
  Transmission Date: 20101027
  Serious: Yes (Other)
  Sender: FDA-Public Use
  Company Number: US-PFIZER INC-2008059752

PATIENT
  Sex: Female
  Weight: 73 kg

DRUGS (4)
  1. PROVERA [Suspect]
     Indication: HORMONE REPLACEMENT THERAPY
     Dosage: 2.5 MG, UNK
     Route: 048
     Dates: start: 19890801, end: 19991201
  2. OGEN [Suspect]
     Indication: HORMONE REPLACEMENT THERAPY
     Dosage: 0.75 MG, UNK
     Dates: start: 19890801, end: 19991201
  3. ESTRACE [Suspect]
     Indication: HORMONE REPLACEMENT THERAPY
     Dosage: UNK
     Dates: start: 19890801, end: 19991201
  4. ACETYLSALICYLIC ACID [Concomitant]
     Indication: THROMBOSIS
     Dosage: UNK

REACTIONS (1)
  - BREAST CANCER IN SITU [None]
